FAERS Safety Report 25552043 (Version 2)
Quarter: 2025Q3

REPORT INFORMATION
  Report Type: Spontaneous
  Country: US (occurrence: US)
  Receive Date: 20250715
  Receipt Date: 20250901
  Transmission Date: 20251020
  Serious: No
  Sender: CIPLA
  Company Number: US-CIPLA LTD.-2025US08360

PATIENT

DRUGS (2)
  1. LANREOTIDE ACETATE [Suspect]
     Active Substance: LANREOTIDE ACETATE
     Indication: Product used for unknown indication
     Route: 065
     Dates: start: 2010
  2. LANREOTIDE ACETATE [Suspect]
     Active Substance: LANREOTIDE ACETATE
     Route: 065

REACTIONS (2)
  - Product dose omission issue [Unknown]
  - Needle issue [Unknown]

NARRATIVE: CASE EVENT DATE: 20250627
